FAERS Safety Report 20768316 (Version 1)
Quarter: 2022Q2

REPORT INFORMATION
  Report Type: Report from Study
  Country: JP (occurrence: JP)
  Receive Date: 20220429
  Receipt Date: 20220429
  Transmission Date: 20220721
  Serious: Yes (Other)
  Sender: FDA-Public Use
  Company Number: JP-CELLTRION INC.-2019JP025472

PATIENT

DRUGS (10)
  1. INFLIXIMAB [Suspect]
     Active Substance: INFLIXIMAB
     Indication: Rheumatoid arthritis
     Dosage: 300 MG; WEIGHT: 45 KG
     Route: 041
     Dates: start: 20180813, end: 20180813
  2. INFLIXIMAB [Suspect]
     Active Substance: INFLIXIMAB
     Dosage: 300 MG; WEIGHT: 44 KG
     Route: 041
     Dates: start: 20181206, end: 20181206
  3. INFLIXIMAB [Suspect]
     Active Substance: INFLIXIMAB
     Dosage: 300 MG; WEIGHT: 44 KG
     Route: 041
     Dates: start: 20190111, end: 20190111
  4. INFLIXIMAB [Suspect]
     Active Substance: INFLIXIMAB
     Dosage: 300 MG; WEIGHT: 45 KG
     Route: 041
     Dates: start: 20190701, end: 20190701
  5. MINOCYCLINE HYDROCHLORIDE [Concomitant]
     Active Substance: MINOCYCLINE HYDROCHLORIDE
     Indication: Spinal osteoarthritis
     Dosage: 4 DOSAGE FORMS (2 DOSAGE FORMS. 2 N 1 D)
     Route: 048
     Dates: start: 20180921, end: 20181020
  6. METHOTREXATE [Concomitant]
     Active Substance: METHOTREXATE
     Indication: Rheumatoid arthritis
     Dosage: 1.142 MG (8 MG IN 1 IN 1 WK)
     Route: 048
     Dates: start: 20160808, end: 20160911
  7. METHOTREXATE [Concomitant]
     Active Substance: METHOTREXATE
     Dosage: 0.57MG (4 MG, IN 1 IN 1 WK)
     Route: 048
     Dates: start: 20160912
  8. LOXOPROFEN SODIUM DIHYDRATE [Concomitant]
     Active Substance: LOXOPROFEN SODIUM DIHYDRATE
     Indication: Rheumatoid arthritis
     Dosage: PRN
     Route: 062
     Dates: start: 20161212
  9. SODIUM FERROUS CITRATE [Concomitant]
     Active Substance: SODIUM FERROUS CITRATE
     Indication: Rheumatoid arthritis
     Dosage: (200 MG, 2 IN 1 D)
     Route: 048
     Dates: start: 20170725, end: 20191104
  10. FOLIC ACID [Concomitant]
     Active Substance: FOLIC ACID
     Indication: Rheumatoid arthritis
     Dosage: 0.714 MG (5 MG, 1 IN 1 WK)
     Route: 048
     Dates: start: 20171114, end: 20190818

REACTIONS (8)
  - Device related infection [Recovered/Resolved]
  - Wound [Recovered/Resolved]
  - Contusion [Unknown]
  - Neuralgia [Recovering/Resolving]
  - Cubital tunnel syndrome [Recovering/Resolving]
  - Constipation [Not Recovered/Not Resolved]
  - Off label use [Unknown]
  - Product use issue [Unknown]

NARRATIVE: CASE EVENT DATE: 20180926
